FAERS Safety Report 6654576-4 (Version None)
Quarter: 2010Q1

REPORT INFORMATION
  Report Type: 
  Country: None (occurrence: None)
  Receive Date: 20100326
  Receipt Date: 20100323
  Transmission Date: 20100710
  Serious: Yes (Death)
  Sender: FDA-Public Use
  Company Number: DE-ROCHE-693177

PATIENT
  Age: 59 Year
  Sex: Female

DRUGS (3)
  1. CAPECITABINE [Suspect]
     Dosage: GIVEN DAYS 1 - 14, EVERY THREE WEEKS.
     Route: 048
     Dates: start: 20070217, end: 20080205
  2. CAELYX [Suspect]
     Route: 065
     Dates: start: 20080311
  3. ZOMETA [Concomitant]
     Route: 042
     Dates: start: 20050701

REACTIONS (1)
  - MALIGNANT NEOPLASM PROGRESSION [None]
